FAERS Safety Report 16848986 (Version 2)
Quarter: 2019Q4

REPORT INFORMATION
  Report Type: Spontaneous
  Country: BR (occurrence: BR)
  Receive Date: 20190925
  Receipt Date: 20191001
  Transmission Date: 20200122
  Serious: Yes (Other)
  Sender: FDA-Public Use
  Company Number: BR-AMGEN-BRASP2017180358

PATIENT
  Age: 53 Year
  Sex: Female

DRUGS (5)
  1. PATZ [Concomitant]
     Dosage: UNK
     Dates: start: 201711
  2. ENBREL [Suspect]
     Active Substance: ETANERCEPT
     Indication: ANKYLOSING SPONDYLITIS
     Dosage: 50 MG, WEEKLY
     Route: 065
     Dates: start: 2014
  3. QUETROS [Concomitant]
     Active Substance: QUETIAPINE
     Dosage: UNK
     Dates: start: 201711
  4. ENBREL [Suspect]
     Active Substance: ETANERCEPT
     Dosage: 50 MILLIGRAM, QWK
     Route: 065
  5. DONAREN [Concomitant]
     Active Substance: TRAZODONE HYDROCHLORIDE
     Dosage: UNK
     Dates: start: 2010, end: 201709

REACTIONS (7)
  - Sleep disorder [Recovered/Resolved]
  - Nasal turbinate hypertrophy [Unknown]
  - Drug ineffective [Not Recovered/Not Resolved]
  - Product storage error [Unknown]
  - Pain [Not Recovered/Not Resolved]
  - Poor quality product administered [Unknown]
  - Injection site pain [Unknown]
